FAERS Safety Report 11884726 (Version 1)
Quarter: 2016Q1

REPORT INFORMATION
  Report Type: Spontaneous
  Country: US (occurrence: US)
  Receive Date: 20160104
  Receipt Date: 20160104
  Transmission Date: 20160526
  Serious: No
  Sender: FDA-Public Use
  Company Number: US-ASTRAZENECA-2015SF30626

PATIENT
  Sex: Male
  Weight: 88.9 kg

DRUGS (1)
  1. SYMBICORT [Suspect]
     Active Substance: BUDESONIDE\FORMOTEROL FUMARATE DIHYDRATE
     Indication: BRONCHITIS
     Dosage: 160/4.5 MCG, TWO TIMES A DAY
     Route: 055

REACTIONS (3)
  - Oral mucosal erythema [Unknown]
  - Drug ineffective [Unknown]
  - Burning sensation [Unknown]
